FAERS Safety Report 7094184-7 (Version None)
Quarter: 2010Q4

REPORT INFORMATION
  Report Type: 
  Country: None (occurrence: None)
  Receive Date: 20101110
  Receipt Date: 20101108
  Transmission Date: 20110411
  Serious: Yes (Death)
  Sender: FDA-Public Use
  Company Number: BR-B.I. PHARMACEUTICALS,INC./RIDGEFIELD-2010-BR-02687BR

PATIENT
  Age: 82 Year
  Sex: Female

DRUGS (4)
  1. SPIRIVA [Suspect]
     Indication: EMPHYSEMA
     Dates: start: 20070101, end: 20101025
  2. NEUTROFER [Concomitant]
  3. RESPIFOR [Concomitant]
  4. FRONTAL [Concomitant]

REACTIONS (1)
  - NEOPLASM MALIGNANT [None]
